FAERS Safety Report 20343658 (Version 2)
Quarter: 2022Q1

REPORT INFORMATION
  Report Type: Report from Study
  Country: None (occurrence: US)
  Receive Date: 20220118
  Receipt Date: 20220124
  Transmission Date: 20220424
  Serious: Yes (Other)
  Sender: FDA-Public Use
  Company Number: US-AKCEA THERAPEUTICS-2020IS001671

PATIENT
  Age: 61 Year
  Sex: Male
  Weight: 74.955 kg

DRUGS (6)
  1. TEGSEDI [Suspect]
     Active Substance: INOTERSEN SODIUM
     Indication: Hereditary neuropathic amyloidosis
     Route: 058
     Dates: start: 20201211
  2. DEVICE [Suspect]
     Active Substance: DEVICE
  3. ASPIRIN [Concomitant]
     Active Substance: ASPIRIN
     Route: 065
  4. ESOMEPRAZOLE MAGNESIUM [Concomitant]
     Active Substance: ESOMEPRAZOLE MAGNESIUM
     Route: 065
  5. METOPROLOL SUCCINATE [Concomitant]
     Active Substance: METOPROLOL SUCCINATE
     Route: 065
  6. VITAMIN D3 [Concomitant]
     Active Substance: CHOLECALCIFEROL
     Route: 065

REACTIONS (11)
  - Cardiac amyloidosis [Unknown]
  - Urine abnormality [Unknown]
  - Glucose urine present [Unknown]
  - Urine protein/creatinine ratio increased [Unknown]
  - Platelet count decreased [Not Recovered/Not Resolved]
  - Fluid retention [Unknown]
  - Protein urine present [Unknown]
  - Urine ketone body present [Unknown]
  - Creatinine urine abnormal [Unknown]
  - Bacterial test positive [Unknown]
  - Urinary casts [Unknown]

NARRATIVE: CASE EVENT DATE: 20211018
